FAERS Safety Report 23943130 (Version 1)
Quarter: 2024Q2

REPORT INFORMATION
  Report Type: Spontaneous
  Country: US (occurrence: None)
  Receive Date: 20240605
  Receipt Date: 20240605
  Transmission Date: 20240716
  Serious: Yes (Other)
  Sender: FDA-Public Use
  Company Number: None

PATIENT
  Age: 58 Year
  Sex: Male
  Weight: 95 kg

DRUGS (16)
  1. MYCOPHENOLATE MOFETIL [Suspect]
     Active Substance: MYCOPHENOLATE MOFETIL
     Indication: Heart transplant
     Dosage: FREQUENCY : TWICE A DAY;?
     Route: 048
  2. TACROLIMUS [Suspect]
     Active Substance: TACROLIMUS
     Dosage: FREQUENCY : TWICE A DAY;?
     Route: 048
  3. AMOXICILLIN [Concomitant]
  4. Aspirin [Concomitant]
  5. ATOVAQUONE [Concomitant]
  6. Calcium Citrate + D3 tabs [Concomitant]
  7. DOXAZOSIN [Concomitant]
  8. FAMOTIDINE [Concomitant]
  9. LORATADINE [Concomitant]
  10. MELATONIN [Concomitant]
  11. Metoprolol succinate ER [Concomitant]
  12. MYCOPHENOLATE [Concomitant]
  13. TACROLIMUS [Concomitant]
  14. PRAVASTATIN [Concomitant]
  15. SIROLIMUS [Concomitant]
  16. VIT D3 [Concomitant]

REACTIONS (1)
  - Malignant melanoma [None]

NARRATIVE: CASE EVENT DATE: 20240503
